FAERS Safety Report 4337003-1 (Version None)
Quarter: 2004Q2

REPORT INFORMATION
  Report Type: 
  Country: None (occurrence: None)
  Receive Date: 20040408
  Receipt Date: 20040405
  Transmission Date: 20050107
  Serious: Yes (Hospitalization)
  Sender: FDA-Public Use
  Company Number: US-SHR-03-012709

PATIENT
  Age: 45 Year
  Sex: Female

DRUGS (5)
  1. BETASERON [Suspect]
     Indication: MULTIPLE SCLEROSIS
     Dosage: 8 MIU, EVERY 2D, SUBCUTANEOUS
     Route: 058
     Dates: start: 20000615
  2. DITROPAN [Concomitant]
  3. BACLOFEN [Concomitant]
  4. PAXIL [Concomitant]
  5. ANAPROX [Concomitant]

REACTIONS (5)
  - ADENOMYOSIS [None]
  - CONDITION AGGRAVATED [None]
  - DYSPNOEA [None]
  - MULTIPLE SCLEROSIS [None]
  - UTERINE HAEMORRHAGE [None]
